FAERS Safety Report 19884789 (Version 1)
Quarter: 2021Q3

REPORT INFORMATION
  Report Type: Other
  Country: CA (occurrence: CA)
  Receive Date: 20210927
  Receipt Date: 20210927
  Transmission Date: 20211014
  Serious: Yes (Hospitalization, Other)
  Sender: FDA-Public Use
  Company Number: CA-APOTEX-2021AP042805

PATIENT
  Sex: Male

DRUGS (1)
  1. CETIRIZINE [Suspect]
     Active Substance: CETIRIZINE HYDROCHLORIDE
     Indication: PRODUCT USED FOR UNKNOWN INDICATION
     Dosage: 20 MILLIGRAM
     Route: 065

REACTIONS (10)
  - Hallucinations, mixed [Recovered/Resolved]
  - Amnesia [Recovered/Resolved]
  - Paranoia [Recovered/Resolved]
  - Thinking abnormal [Recovered/Resolved]
  - Persecutory delusion [Recovered/Resolved]
  - Serum ferritin increased [Recovered/Resolved]
  - Aggression [Recovered/Resolved]
  - Agitation [Recovered/Resolved]
  - Lymphopenia [Recovered/Resolved]
  - Transaminases increased [Recovered/Resolved]
